FAERS Safety Report 19040344 (Version 1)
Quarter: 2021Q1

REPORT INFORMATION
  Report Type: Spontaneous
  Country: US (occurrence: US)
  Receive Date: 20210322
  Receipt Date: 20210322
  Transmission Date: 20210420
  Serious: No
  Sender: FDA-Public Use
  Company Number: US-BIOHAVEN PHARMACEUTICALS-2021BHV00125

PATIENT
  Age: 56 Year
  Sex: Female
  Weight: 94.79 kg

DRUGS (9)
  1. PANTOPRAZOLE [Concomitant]
     Active Substance: PANTOPRAZOLE
  2. AMBIEN [Concomitant]
     Active Substance: ZOLPIDEM TARTRATE
  3. NURTEC ODT [Suspect]
     Active Substance: RIMEGEPANT SULFATE
     Indication: MIGRAINE
     Dosage: 75 MG, ONE DOSE
     Route: 048
     Dates: start: 202101
  4. METHOCARBAMOL. [Concomitant]
     Active Substance: METHOCARBAMOL
  5. MAXALT [Concomitant]
     Active Substance: RIZATRIPTAN BENZOATE
  6. NORCO [Concomitant]
     Active Substance: ACETAMINOPHEN\HYDROCODONE BITARTRATE
  7. NEURONTIN [Concomitant]
     Active Substance: GABAPENTIN
  8. LOSARTAN. [Concomitant]
     Active Substance: LOSARTAN
  9. FENOFIBRATE. [Concomitant]
     Active Substance: FENOFIBRATE

REACTIONS (1)
  - Therapeutic product effect incomplete [Recovered/Resolved]

NARRATIVE: CASE EVENT DATE: 202101
